FAERS Safety Report 23958162 (Version 3)
Quarter: 2024Q3

REPORT INFORMATION
  Report Type: Spontaneous
  Country: US (occurrence: US)
  Receive Date: 20240610
  Receipt Date: 20240919
  Transmission Date: 20241016
  Serious: Yes (Hospitalization, Other)
  Sender: BRISTOL MYERS SQUIBB
  Company Number: US-BRISTOL-MYERS SQUIBB COMPANY-2024-092188

PATIENT
  Age: 75 Year
  Sex: Male
  Weight: 86.64 kg

DRUGS (3)
  1. REVLIMID [Suspect]
     Active Substance: LENALIDOMIDE
     Indication: Chronic lymphocytic leukaemia
     Route: 048
  2. REVLIMID [Suspect]
     Active Substance: LENALIDOMIDE
     Route: 048
  3. REVLIMID [Suspect]
     Active Substance: LENALIDOMIDE
     Dosage: ONCE DAILY
     Route: 048

REACTIONS (5)
  - Acute kidney injury [Recovering/Resolving]
  - Off label use [Unknown]
  - Rash [Unknown]
  - Neutropenia [Unknown]
  - White blood cell count abnormal [Unknown]
